FAERS Safety Report 23617953 (Version 2)
Quarter: 2024Q2

REPORT INFORMATION
  Report Type: Report from Study
  Country: CA (occurrence: CA)
  Receive Date: 20240311
  Receipt Date: 20240416
  Transmission Date: 20240716
  Serious: Yes (Hospitalization, Other)
  Sender: FDA-Public Use
  Company Number: CA-AstraZeneca-2024A031152

PATIENT
  Sex: Female

DRUGS (1)
  1. ENHERTU [Suspect]
     Active Substance: FAM-TRASTUZUMAB DERUXTECAN-NXKI
     Indication: Breast cancer female
     Dosage: 300 MG, ONCE EVERY 3 WK
     Route: 042
     Dates: start: 20230120, end: 20240112

REACTIONS (3)
  - Disease complication [Unknown]
  - Pneumonitis [Unknown]
  - Interstitial lung disease [Unknown]
